FAERS Safety Report 16230314 (Version 8)
Quarter: 2020Q4

REPORT INFORMATION
  Report Type: Spontaneous
  Country: CA (occurrence: CA)
  Receive Date: 20190423
  Receipt Date: 20201015
  Transmission Date: 20210113
  Serious: Yes (Hospitalization, Other)
  Sender: FDA-Public Use
  Company Number: CA-PFIZER INC-2019164650

PATIENT
  Age: 56 Year
  Sex: Male

DRUGS (35)
  1. AMLODIPINE BESILATE [Suspect]
     Active Substance: AMLODIPINE BESYLATE
     Dosage: 1.5 DF, 1X/DAY
     Route: 065
  2. BRILINTA [Suspect]
     Active Substance: TICAGRELOR
     Dosage: 2 DF, QD
     Route: 048
  3. MYLAN NITRO SL [Suspect]
     Active Substance: NITROGLYCERIN
     Indication: PRINZMETAL ANGINA
     Dosage: 1 DF, QD
     Route: 065
  4. NITRO-DUR [Suspect]
     Active Substance: NITROGLYCERIN
     Dosage: UNK DF
     Route: 048
  5. ACETYLSALICYLIC ACID [Suspect]
     Active Substance: ASPIRIN
     Dosage: 1 DF, QD
  6. BRILINTA [Suspect]
     Active Substance: TICAGRELOR
     Dosage: 1 DF, BID
     Route: 048
  7. DEXILANT [Suspect]
     Active Substance: DEXLANSOPRAZOLE
     Dosage: 1 DF, QD
     Route: 048
  8. EMO CORT [Suspect]
     Active Substance: HYDROCORTISONE
     Dosage: 1 DF, 1X/DAY
     Route: 061
  9. METONIA [Suspect]
     Active Substance: METOCLOPRAMIDE
     Dosage: 1 DF, Q8H
     Route: 048
  10. MYLAN NITRO [Suspect]
     Active Substance: NITROGLYCERIN
     Indication: PRINZMETAL ANGINA
     Dosage: UNK
     Route: 048
  11. APO-ESCITALOPRAM [Suspect]
     Active Substance: ESCITALOPRAM OXALATE
     Dosage: 1 DF, QD
     Route: 065
  12. DILTIAZEM [DILTIAZEM HYDROCHLORIDE] [Suspect]
     Active Substance: DILTIAZEM HYDROCHLORIDE
     Dosage: 1 DF, QD
     Route: 048
  13. RATIO-ZOPICLONE [Suspect]
     Active Substance: ZOPICLONE
     Dosage: 1 DF
     Route: 048
  14. BISOPROL [Suspect]
     Active Substance: BISOPROLOL FUMARATE
     Dosage: 1 DF, QD
     Route: 048
  15. AMLODIPINE BESILATE [Suspect]
     Active Substance: AMLODIPINE BESYLATE
     Dosage: 1.5 DF, QD
     Route: 065
  16. TRIATEC (RAMIPRIL) [Suspect]
     Active Substance: RAMIPRIL
     Dosage: 1 DF, QID
     Route: 048
  17. TAMSULOSIN CR [Suspect]
     Active Substance: TAMSULOSIN
     Dosage: 1 DF, 1X/DAY
     Route: 048
  18. APO-TRAZODONE [Suspect]
     Active Substance: TRAZODONE HYDROCHLORIDE
     Dosage: 1 DF, QD
     Route: 065
  19. NITRO-DUR [Suspect]
     Active Substance: NITROGLYCERIN
     Indication: PRINZMETAL ANGINA
     Dosage: 1 DF, QD
     Route: 048
  20. METONIA [Suspect]
     Active Substance: METOCLOPRAMIDE
     Indication: MIGRAINE
     Dosage: 1 DF, TID
     Route: 065
  21. MYLAN NITRO SL [Suspect]
     Active Substance: NITROGLYCERIN
     Indication: PRINZMETAL ANGINA
     Dosage: UNK
     Route: 048
  22. NASONEX [Suspect]
     Active Substance: MOMETASONE FUROATE
     Dosage: 1 DF, 1X/DAY 1 DF, QD (INTRA-NASAL, SPRAY METERED DOSE)
     Route: 065
  23. TEVABISOPROL [Suspect]
     Active Substance: BISOPROLOL FUMARATE
     Dosage: 1 DF, 1X/DAY
     Route: 065
  24. NITRO-DUR [Suspect]
     Active Substance: NITROGLYCERIN
     Dosage: UNK
     Route: 048
  25. ROSUVASTATIN CALCIUM. [Suspect]
     Active Substance: ROSUVASTATIN CALCIUM
     Dosage: 1 DF, QD
     Route: 048
  26. BISOPROL [Suspect]
     Active Substance: BISOPROLOL FUMARATE
     Dosage: 1 DF, QD
     Route: 065
  27. FLOMAX [Suspect]
     Active Substance: TAMSULOSIN HYDROCHLORIDE
     Dosage: 1 DF, 1X/DAY
     Route: 048
  28. CLONAZEPAM. [Suspect]
     Active Substance: CLONAZEPAM
     Dosage: 3 DF, QD
     Route: 065
  29. CLONAZEPAM. [Suspect]
     Active Substance: CLONAZEPAM
     Dosage: 3 DF, QD
     Route: 048
  30. DELATESTRYL [Suspect]
     Active Substance: TESTOSTERONE ENANTHATE
     Dosage: 0.5 ML, QOW (EVERY TWO WEEKS)
     Route: 030
  31. ROSUVASTATIN CALCIUM. [Suspect]
     Active Substance: ROSUVASTATIN CALCIUM
     Dosage: 1 DF, 1X/DAY
     Route: 048
  32. CICLOPIROX OLAMINE. [Suspect]
     Active Substance: CICLOPIROX OLAMINE
     Dosage: UNK
     Route: 065
  33. CLONAZEPAM. [Suspect]
     Active Substance: CLONAZEPAM
     Dosage: 1 DF, TID
     Route: 048
  34. NASONEX [Suspect]
     Active Substance: MOMETASONE FUROATE
     Dosage: 1 DF, QD
     Route: 045
  35. SYNTHROID [Suspect]
     Active Substance: LEVOTHYROXINE SODIUM
     Dosage: 1 DF, QD
     Route: 065

REACTIONS (3)
  - Device malfunction [Recovered/Resolved]
  - Device dislocation [Recovered/Resolved]
  - Drug ineffective [Recovered/Resolved]
